FAERS Safety Report 13035987 (Version 2)
Quarter: 2018Q2

REPORT INFORMATION
  Report Type: Report from Study
  Country: ZA (occurrence: ZA)
  Receive Date: 20161216
  Receipt Date: 20180601
  Transmission Date: 20180711
  Serious: Yes (Hospitalization, Other)
  Sender: FDA-Public Use
  Company Number: ZA-ELI_LILLY_AND_COMPANY-ZA201612002724

PATIENT
  Sex: Female
  Weight: 58 kg

DRUGS (18)
  1. CARBOPLATIN. [Suspect]
     Active Substance: CARBOPLATIN
     Dosage: AUC 4 DAY 1 OF 21-DAY
     Route: 042
     Dates: start: 20160930
  2. PARACETAMOL [Concomitant]
     Active Substance: ACETAMINOPHEN
     Indication: BACK PAIN
     Dosage: 1 G, PRN
     Route: 048
     Dates: start: 20160603
  3. VENTEZE                            /00139501/ [Concomitant]
     Active Substance: ALBUTEROL
     Indication: EMPHYSEMA
     Dosage: 2 PUFFS, PRN
     Route: 055
     Dates: start: 20160627
  4. LENAMET [Concomitant]
     Active Substance: CIMETIDINE
     Indication: PREMEDICATION
  5. VITAMIN B12 [Concomitant]
     Active Substance: CYANOCOBALAMIN
     Indication: PREMEDICATION
  6. SLOW-K [Concomitant]
     Active Substance: POTASSIUM CHLORIDE
     Indication: HYPOKALAEMIA
     Dosage: 2 DF, BID
     Route: 048
     Dates: start: 20160908
  7. FERRIMED DS [Concomitant]
     Indication: ANAEMIA
     Dosage: 1 DF, QD
     Route: 048
     Dates: start: 20161018
  8. CARBOPLATIN. [Suspect]
     Active Substance: CARBOPLATIN
     Indication: NON-SMALL CELL LUNG CANCER
     Dosage: AUC 6 DAY 1 OF 21-DAY
     Route: 042
     Dates: start: 20160708, end: 20160708
  9. CLOPAMON [Concomitant]
     Active Substance: METOCLOPRAMIDE
     Indication: NAUSEA
     Dosage: 10 MG, TID
     Route: 048
     Dates: start: 20160712
  10. BUDEFLAM [Concomitant]
     Active Substance: BUDESONIDE
     Indication: EMPHYSEMA
     Dosage: 2 PUFFS QD
     Route: 055
     Dates: start: 20160613
  11. LENAMET [Concomitant]
     Active Substance: CIMETIDINE
     Indication: CHEMOTHERAPY
     Dosage: 300 MG, ON DAY ONE OF EACH CYCLE
     Route: 042
     Dates: start: 20160708
  12. LACSON [Concomitant]
     Indication: CONSTIPATION
     Dosage: 10 ML, QD
     Route: 048
     Dates: start: 20160817
  13. FOLIC ACID. [Concomitant]
     Active Substance: FOLIC ACID
     Indication: PREMEDICATION
  14. CARBOPLATIN. [Suspect]
     Active Substance: CARBOPLATIN
     Dosage: AUC 5 DAY 1 OF 21-DAY
     Route: 042
     Dates: start: 20160729, end: 20160909
  15. PEMETREXED. [Suspect]
     Active Substance: PEMETREXED
     Indication: NON-SMALL CELL LUNG CANCER
     Dosage: 500 MG/M2, ONCE EVERY THREE WEEKS
     Route: 042
     Dates: start: 20160708
  16. VITAMIN B12 [Concomitant]
     Active Substance: CYANOCOBALAMIN
     Indication: CHEMOTHERAPY
     Dosage: 100 MG, QD
     Route: 048
     Dates: start: 20160701
  17. FOLIC ACID. [Concomitant]
     Active Substance: FOLIC ACID
     Indication: CHEMOTHERAPY
     Dosage: 0.5 MG, QD
     Route: 048
     Dates: start: 20160701
  18. TRAMACET [Concomitant]
     Active Substance: ACETAMINOPHEN\TRAMADOL
     Indication: PERIPHERAL SENSORY NEUROPATHY
     Dosage: 2 DF, QID
     Route: 048
     Dates: start: 20161005

REACTIONS (6)
  - Thrombocytopenia [Recovered/Resolved]
  - Hypophagia [Unknown]
  - Mucosal inflammation [Unknown]
  - White blood cell count decreased [Recovered/Resolved]
  - Anaemia [Recovered/Resolved]
  - Neutropenia [Recovered/Resolved]

NARRATIVE: CASE EVENT DATE: 20160922
